FAERS Safety Report 5197536-5 (Version None)
Quarter: 2006Q4

REPORT INFORMATION
  Report Type: 
  Country: None (occurrence: None)
  Receive Date: 20060926
  Receipt Date: 20060710
  Transmission Date: 20070319
  Serious: No
  Sender: FDA-Public Use
  Company Number: SP00841

PATIENT
  Age: 56 Year
  Sex: Female
  Weight: 69.4003 kg

DRUGS (7)
  1. XIFAXAN [Suspect]
     Indication: POUCHITIS
     Dosage: 2 TABLETS, QD; ORAL
     Route: 048
     Dates: start: 20051205
  2. CIPROFLOXACIN [Suspect]
     Indication: POUCHITIS
     Dates: start: 20050901
  3. HYDROCORTISONE (SUPPOSITORY) [Concomitant]
  4. LEVSINEX [Concomitant]
  5. VSL #3 [Concomitant]
  6. CODEINE SUL TAB [Concomitant]
  7. XALATN EYE DROPS [Concomitant]

REACTIONS (4)
  - MICTURITION URGENCY [None]
  - PAIN IN EXTREMITY [None]
  - TENDONITIS [None]
  - URINARY INCONTINENCE [None]
